FAERS Safety Report 23690802 (Version 1)
Quarter: 2024Q2

REPORT INFORMATION
  Report Type: Report from Study
  Country: US (occurrence: US)
  Receive Date: 20240401
  Receipt Date: 20240401
  Transmission Date: 20240715
  Serious: Yes (Other)
  Sender: FDA-Public Use
  Company Number: US-ABBVIE-5695181

PATIENT
  Age: 56 Year
  Sex: Female

DRUGS (27)
  1. VENCLEXTA [Suspect]
     Active Substance: VENETOCLAX
     Indication: Acute myeloid leukaemia
     Dosage: 700 MG
     Route: 048
     Dates: end: 20240315
  2. VENCLEXTA [Suspect]
     Active Substance: VENETOCLAX
     Indication: Acute myeloid leukaemia
     Dosage: 100 MILLIGRAM
     Route: 048
  3. VENCLEXTA [Suspect]
     Active Substance: VENETOCLAX
     Indication: Acute myeloid leukaemia
     Dosage: 200 MILLIGRAM
     Route: 048
  4. VENCLEXTA [Suspect]
     Active Substance: VENETOCLAX
     Indication: Acute myeloid leukaemia
     Dosage: 400 MILLIGRAM
     Route: 048
  5. Vvitamin B complex [Concomitant]
     Indication: Product used for unknown indication
     Route: 048
  6. MEDROL [Concomitant]
     Active Substance: METHYLPREDNISOLONE
     Indication: Product used for unknown indication
     Dosage: FREQUENCY TEXT: TAKE AS DIRECTED
     Route: 048
  7. COMPAZINE [Concomitant]
     Active Substance: PROCHLORPERAZINE MALEATE
     Indication: Nausea
     Dosage: TIME INTERVAL: 0.33333333 DAYS
     Route: 048
  8. FISH OIL [Concomitant]
     Active Substance: FISH OIL
     Indication: Product used for unknown indication
     Dosage: FORM STRENGTH: 1000 MG
     Route: 048
  9. EMLA [Concomitant]
     Active Substance: LIDOCAINE\PRILOCAINE
     Indication: Product used for unknown indication
     Dosage: 2.5%-2.5% 30 GM CREAM?PRODUCT (FISH OIL) -
     Route: 061
  10. HEPARIN SODIUM [Concomitant]
     Active Substance: HEPARIN SODIUM
     Indication: Product used for unknown indication
     Dosage: 100 UNITS/ML SOLUTION, 500 UNITS- 5 ML, FLUSH, AE DIRECTED; FREQUENCY TEXT: PRN
     Route: 042
     Dates: start: 20240118
  11. SODIUM CHLORIDE [Concomitant]
     Active Substance: SODIUM CHLORIDE
     Indication: Product used for unknown indication
     Dosage: DOSE RANGE 10-20, FLUSH AS DIRECTED, PRN; FORM STRENGTH: 1000 MILLILITRE (S)
     Route: 042
     Dates: start: 20240118
  12. SODIUM CHLORIDE [Concomitant]
     Active Substance: SODIUM CHLORIDE
     Indication: Product used for unknown indication
     Dosage: 100ML/HR, INSERT/MAINTAIN PERIPHERAL IV IF NOT ALREADY IN PLACE,
     Route: 042
     Dates: start: 20240112
  13. ATORVASTATIN [Concomitant]
     Active Substance: ATORVASTATIN
     Indication: Product used for unknown indication
     Dosage: FORM STRENGTH: 20 MILLIGRAM
     Route: 048
  14. ALTEPLASE [Concomitant]
     Active Substance: ALTEPLASE
     Indication: Product used for unknown indication
     Dosage: 2MG IV PUSH OF ALTEPLASE USED FOR CATHETER CLEANING PURPOSE; PRN
     Route: 042
     Dates: end: 20240118
  15. KEPPRA [Concomitant]
     Active Substance: LEVETIRACETAM
     Indication: Product used for unknown indication
     Dosage: FORM STRENGTH: 250 MG; AFTER STOPPING CARBAMAZEPINE IF TOLERATED
     Route: 048
  16. FLUMAZENIL [Concomitant]
     Active Substance: FLUMAZENIL
     Indication: Sedation
     Dosage: FREQUENCY TEXT: PRN SEDATION
     Route: 042
     Dates: start: 20231207
  17. FLUMAZENIL [Concomitant]
     Active Substance: FLUMAZENIL
     Indication: Sedation
     Dosage: FREQUENCY TEXT: PRN
     Route: 042
     Dates: start: 20240112
  18. NALOXONE [Concomitant]
     Active Substance: NALOXONE
     Indication: Sedation
     Dosage: PRN
     Route: 042
     Dates: start: 20231207
  19. NALOXONE [Concomitant]
     Active Substance: NALOXONE
     Indication: Sedation
     Dosage: PRN
     Route: 042
     Dates: start: 20240112
  20. CARBAMAZEPINE [Concomitant]
     Active Substance: CARBAMAZEPINE
     Indication: Product used for unknown indication
     Dosage: FORM STRENGTH: 200 MILLIGRAM
     Route: 048
  21. PROCHLORPERAZINE [Concomitant]
     Active Substance: PROCHLORPERAZINE
     Indication: Vomiting
     Dosage: FORM STRENGTH: 5 MILLIGRAM
     Route: 042
     Dates: start: 20240116, end: 20240123
  22. PROCHLORPERAZINE [Concomitant]
     Active Substance: PROCHLORPERAZINE
     Indication: Vomiting
     Dosage: TIME INTERVAL: 0.33333333 DAYS: FORM STRENGTH: 5 MILLIGRAM ; DURATION TEXT: ONCE, ADMINISTER OVER...
     Route: 048
  23. MIRALAX [Concomitant]
     Active Substance: POLYETHYLENE GLYCOL 3350
     Indication: Constipation
     Route: 048
     Dates: start: 20231207
  24. TYLENOL [Concomitant]
     Active Substance: ACETAMINOPHEN
     Indication: Pyrexia
     Route: 048
     Dates: start: 20231207
  25. LOSARTAN [Concomitant]
     Active Substance: LOSARTAN
     Indication: Product used for unknown indication
     Dosage: FORM STRENGTH: 100 MG
     Route: 048
  26. LOSARTAN [Concomitant]
     Active Substance: LOSARTAN
     Indication: Product used for unknown indication
     Dosage: FORM STRENGTH: 50 MG
     Route: 048
  27. ERGOCALCIFEROL [Concomitant]
     Active Substance: ERGOCALCIFEROL
     Indication: Product used for unknown indication
     Route: 048

REACTIONS (3)
  - Myelodysplastic syndrome [Unknown]
  - White blood cell count abnormal [Unknown]
  - Off label use [Unknown]

NARRATIVE: CASE EVENT DATE: 20231207
